FAERS Safety Report 25656398 (Version 1)
Quarter: 2025Q3

REPORT INFORMATION
  Report Type: Spontaneous
  Country: US (occurrence: US)
  Receive Date: 20250807
  Receipt Date: 20250807
  Transmission Date: 20251020
  Serious: No
  Sender: MYLAN
  Company Number: US-MYLANLABS-2025M1065901

PATIENT
  Sex: Female

DRUGS (84)
  1. LYRICA [Suspect]
     Active Substance: PREGABALIN
     Indication: Product used for unknown indication
  2. LYRICA [Suspect]
     Active Substance: PREGABALIN
     Route: 065
  3. LYRICA [Suspect]
     Active Substance: PREGABALIN
     Route: 065
  4. LYRICA [Suspect]
     Active Substance: PREGABALIN
  5. FOLIC ACID [Concomitant]
     Active Substance: FOLIC ACID
  6. FOLIC ACID [Concomitant]
     Active Substance: FOLIC ACID
     Route: 065
  7. FOLIC ACID [Concomitant]
     Active Substance: FOLIC ACID
     Route: 065
  8. FOLIC ACID [Concomitant]
     Active Substance: FOLIC ACID
  9. ISOSORBIDE [Concomitant]
     Active Substance: ISOSORBIDE
  10. ISOSORBIDE [Concomitant]
     Active Substance: ISOSORBIDE
     Route: 065
  11. ISOSORBIDE [Concomitant]
     Active Substance: ISOSORBIDE
     Route: 065
  12. ISOSORBIDE [Concomitant]
     Active Substance: ISOSORBIDE
  13. METOPROLOL [Concomitant]
     Active Substance: METOPROLOL
  14. METOPROLOL [Concomitant]
     Active Substance: METOPROLOL
     Route: 065
  15. METOPROLOL [Concomitant]
     Active Substance: METOPROLOL
     Route: 065
  16. METOPROLOL [Concomitant]
     Active Substance: METOPROLOL
  17. LYSINE [Concomitant]
     Active Substance: LYSINE
  18. LYSINE [Concomitant]
     Active Substance: LYSINE
     Route: 065
  19. LYSINE [Concomitant]
     Active Substance: LYSINE
     Route: 065
  20. LYSINE [Concomitant]
     Active Substance: LYSINE
  21. MINERALS\VITAMINS [Concomitant]
     Active Substance: MINERALS\VITAMINS
  22. MINERALS\VITAMINS [Concomitant]
     Active Substance: MINERALS\VITAMINS
     Route: 065
  23. MINERALS\VITAMINS [Concomitant]
     Active Substance: MINERALS\VITAMINS
     Route: 065
  24. MINERALS\VITAMINS [Concomitant]
     Active Substance: MINERALS\VITAMINS
  25. FISH OIL [Concomitant]
     Active Substance: FISH OIL
  26. FISH OIL [Concomitant]
     Active Substance: FISH OIL
     Route: 065
  27. FISH OIL [Concomitant]
     Active Substance: FISH OIL
     Route: 065
  28. FISH OIL [Concomitant]
     Active Substance: FISH OIL
  29. RESTASIS [Concomitant]
     Active Substance: CYCLOSPORINE
  30. RESTASIS [Concomitant]
     Active Substance: CYCLOSPORINE
     Route: 065
  31. RESTASIS [Concomitant]
     Active Substance: CYCLOSPORINE
     Route: 065
  32. RESTASIS [Concomitant]
     Active Substance: CYCLOSPORINE
  33. LOSARTAN [Concomitant]
     Active Substance: LOSARTAN
  34. LOSARTAN [Concomitant]
     Active Substance: LOSARTAN
     Route: 065
  35. LOSARTAN [Concomitant]
     Active Substance: LOSARTAN
     Route: 065
  36. LOSARTAN [Concomitant]
     Active Substance: LOSARTAN
  37. LUTEIN [Concomitant]
     Active Substance: LUTEIN
  38. LUTEIN [Concomitant]
     Active Substance: LUTEIN
     Route: 065
  39. LUTEIN [Concomitant]
     Active Substance: LUTEIN
     Route: 065
  40. LUTEIN [Concomitant]
     Active Substance: LUTEIN
  41. XARELTO [Concomitant]
     Active Substance: RIVAROXABAN
  42. XARELTO [Concomitant]
     Active Substance: RIVAROXABAN
     Route: 065
  43. XARELTO [Concomitant]
     Active Substance: RIVAROXABAN
     Route: 065
  44. XARELTO [Concomitant]
     Active Substance: RIVAROXABAN
  45. AMLODIPINE [Concomitant]
     Active Substance: AMLODIPINE BESYLATE
  46. AMLODIPINE [Concomitant]
     Active Substance: AMLODIPINE BESYLATE
     Route: 065
  47. AMLODIPINE [Concomitant]
     Active Substance: AMLODIPINE BESYLATE
     Route: 065
  48. AMLODIPINE [Concomitant]
     Active Substance: AMLODIPINE BESYLATE
  49. METHOTREXATE [Concomitant]
     Active Substance: METHOTREXATE
  50. METHOTREXATE [Concomitant]
     Active Substance: METHOTREXATE
     Route: 065
  51. METHOTREXATE [Concomitant]
     Active Substance: METHOTREXATE
     Route: 065
  52. METHOTREXATE [Concomitant]
     Active Substance: METHOTREXATE
  53. PROLIA [Concomitant]
     Active Substance: DENOSUMAB
  54. PROLIA [Concomitant]
     Active Substance: DENOSUMAB
     Route: 065
  55. PROLIA [Concomitant]
     Active Substance: DENOSUMAB
     Route: 065
  56. PROLIA [Concomitant]
     Active Substance: DENOSUMAB
  57. REFRESH OPTIVE MEGA-3 [Concomitant]
     Active Substance: CARBOXYMETHYLCELLULOSE SODIUM\GLYCERIN\POLYSORBATE 80
  58. REFRESH OPTIVE MEGA-3 [Concomitant]
     Active Substance: CARBOXYMETHYLCELLULOSE SODIUM\GLYCERIN\POLYSORBATE 80
     Route: 065
  59. REFRESH OPTIVE MEGA-3 [Concomitant]
     Active Substance: CARBOXYMETHYLCELLULOSE SODIUM\GLYCERIN\POLYSORBATE 80
     Route: 065
  60. REFRESH OPTIVE MEGA-3 [Concomitant]
     Active Substance: CARBOXYMETHYLCELLULOSE SODIUM\GLYCERIN\POLYSORBATE 80
  61. IVIZIA DRY EYE [Concomitant]
     Active Substance: POVIDONE
  62. IVIZIA DRY EYE [Concomitant]
     Active Substance: POVIDONE
     Route: 065
  63. IVIZIA DRY EYE [Concomitant]
     Active Substance: POVIDONE
     Route: 065
  64. IVIZIA DRY EYE [Concomitant]
     Active Substance: POVIDONE
  65. PREDNISONE [Concomitant]
     Active Substance: PREDNISONE
  66. PREDNISONE [Concomitant]
     Active Substance: PREDNISONE
     Route: 065
  67. PREDNISONE [Concomitant]
     Active Substance: PREDNISONE
     Route: 065
  68. PREDNISONE [Concomitant]
     Active Substance: PREDNISONE
  69. MIRALAX [Concomitant]
     Active Substance: POLYETHYLENE GLYCOL 3350
  70. MIRALAX [Concomitant]
     Active Substance: POLYETHYLENE GLYCOL 3350
     Route: 065
  71. MIRALAX [Concomitant]
     Active Substance: POLYETHYLENE GLYCOL 3350
     Route: 065
  72. MIRALAX [Concomitant]
     Active Substance: POLYETHYLENE GLYCOL 3350
  73. COLACE [Concomitant]
     Active Substance: DOCUSATE SODIUM
  74. COLACE [Concomitant]
     Active Substance: DOCUSATE SODIUM
     Route: 065
  75. COLACE [Concomitant]
     Active Substance: DOCUSATE SODIUM
     Route: 065
  76. COLACE [Concomitant]
     Active Substance: DOCUSATE SODIUM
  77. CALCIUM CARBONATE\CHOLECALCIFEROL [Concomitant]
     Active Substance: CALCIUM CARBONATE\CHOLECALCIFEROL
  78. CALCIUM CARBONATE\CHOLECALCIFEROL [Concomitant]
     Active Substance: CALCIUM CARBONATE\CHOLECALCIFEROL
     Route: 065
  79. CALCIUM CARBONATE\CHOLECALCIFEROL [Concomitant]
     Active Substance: CALCIUM CARBONATE\CHOLECALCIFEROL
     Route: 065
  80. CALCIUM CARBONATE\CHOLECALCIFEROL [Concomitant]
     Active Substance: CALCIUM CARBONATE\CHOLECALCIFEROL
  81. CHONDROITIN SULFATE A\GLUCOSAMINE [Concomitant]
     Active Substance: CHONDROITIN SULFATE A\GLUCOSAMINE
  82. CHONDROITIN SULFATE A\GLUCOSAMINE [Concomitant]
     Active Substance: CHONDROITIN SULFATE A\GLUCOSAMINE
     Route: 065
  83. CHONDROITIN SULFATE A\GLUCOSAMINE [Concomitant]
     Active Substance: CHONDROITIN SULFATE A\GLUCOSAMINE
     Route: 065
  84. CHONDROITIN SULFATE A\GLUCOSAMINE [Concomitant]
     Active Substance: CHONDROITIN SULFATE A\GLUCOSAMINE

REACTIONS (1)
  - Condition aggravated [Unknown]
